FAERS Safety Report 4355244-4 (Version None)
Quarter: 2004Q2

REPORT INFORMATION
  Report Type: 
  Country: None (occurrence: None)
  Receive Date: 20040504
  Receipt Date: 20040420
  Transmission Date: 20050107
  Serious: Yes (Hospitalization)
  Sender: FDA-Public Use
  Company Number: 04P-129-0256633-00

PATIENT
  Age: 25 Year
  Sex: Female

DRUGS (2)
  1. ISOPTIN [Suspect]
     Indication: CHEST PAIN
     Dosage: 80 MG, 10 IN 1 DOSE, ORAL
     Route: 048
  2. CAPTOPRIL [Suspect]
     Indication: CHEST PAIN
     Dosage: 25 MG, 10 IN 1 DOSE, ORAL
     Route: 048

REACTIONS (11)
  - ALCOHOL USE [None]
  - ANXIETY [None]
  - ATRIOVENTRICULAR BLOCK FIRST DEGREE [None]
  - ATRIOVENTRICULAR BLOCK SECOND DEGREE [None]
  - BLOOD PRESSURE DECREASED [None]
  - DRUG INEFFECTIVE [None]
  - DRUG TOXICITY [None]
  - LEFT VENTRICULAR FAILURE [None]
  - OVERDOSE [None]
  - SHOCK [None]
  - VOMITING [None]
